FAERS Safety Report 17202716 (Version 1)
Quarter: 2019Q4

REPORT INFORMATION
  Report Type: Spontaneous
  Country: US (occurrence: US)
  Receive Date: 20191226
  Receipt Date: 20191226
  Transmission Date: 20200122
  Serious: Yes (Hospitalization)
  Sender: FDA-Public Use
  Company Number: US-ELI_LILLY_AND_COMPANY-US201912010498

PATIENT
  Age: 55 Year
  Sex: Female

DRUGS (6)
  1. RELION HUMULIN R [Concomitant]
     Indication: TYPE 2 DIABETES MELLITUS
     Dosage: UNK
     Dates: start: 20191204
  2. HUMULIN R [Suspect]
     Active Substance: INSULIN HUMAN
     Indication: TYPE 2 DIABETES MELLITUS
     Dosage: 25 U, TID
     Route: 065
     Dates: start: 1979
  3. HUMULIN N [Suspect]
     Active Substance: INSULIN HUMAN
     Indication: TYPE 2 DIABETES MELLITUS
     Dosage: UNK, UNKNOWN
     Route: 065
     Dates: start: 20191204, end: 20191217
  4. HUMULIN N [Suspect]
     Active Substance: INSULIN HUMAN
     Indication: TYPE 2 DIABETES MELLITUS
     Dosage: 90 U, EACH MORNING
     Route: 065
     Dates: start: 1979
  5. GLUCOPHAGE [Concomitant]
     Active Substance: METFORMIN HYDROCHLORIDE
     Indication: PRODUCT USED FOR UNKNOWN INDICATION
     Dosage: 1000 MG, BID
  6. HUMULIN N [Suspect]
     Active Substance: INSULIN HUMAN
     Dosage: 30 U, EACH EVENING
     Route: 065
     Dates: start: 1979

REACTIONS (8)
  - Mobility decreased [Not Recovered/Not Resolved]
  - Product storage error [Recovering/Resolving]
  - Joint swelling [Recovering/Resolving]
  - Arthropathy [Recovered/Resolved]
  - Asthenia [Not Recovered/Not Resolved]
  - Blood glucose increased [Recovering/Resolving]
  - Arthralgia [Not Recovered/Not Resolved]
  - Wrong dosage formulation [Not Recovered/Not Resolved]

NARRATIVE: CASE EVENT DATE: 2009
